FAERS Safety Report 19743866 (Version 1)
Quarter: 2021Q3

REPORT INFORMATION
  Report Type: Spontaneous
  Country: TR (occurrence: TR)
  Receive Date: 20210824
  Receipt Date: 20210824
  Transmission Date: 20211014
  Serious: Yes (Hospitalization, Other)
  Sender: FDA-Public Use
  Company Number: TR-SETONPHARMA-2021SETLIT00004

PATIENT
  Age: 34 Year
  Sex: Male

DRUGS (4)
  1. THYROXINE [Concomitant]
     Active Substance: LEVOTHYROXINE
     Indication: HYPOTHYROIDISM
  2. PREDNISOLONE. [Suspect]
     Active Substance: PREDNISOLONE
     Indication: HYPOPITUITARISM
     Route: 065
  3. CALCIUM [Interacting]
     Active Substance: CALCIUM
     Indication: OSTEONECROSIS
  4. VITAMIN D NOS [Interacting]
     Active Substance: VITAMIN D NOS
     Indication: OSTEONECROSIS

REACTIONS (7)
  - Arthralgia [Recovered/Resolved]
  - Osteonecrosis [Recovering/Resolving]
  - Nausea [Recovering/Resolving]
  - Off label use [Unknown]
  - Fatigue [Recovering/Resolving]
  - Gait disturbance [Recovering/Resolving]
  - Asthenia [Recovering/Resolving]
